FAERS Safety Report 23848456 (Version 1)
Quarter: 2024Q2

REPORT INFORMATION
  Report Type: Spontaneous
  Country: JP (occurrence: JP)
  Receive Date: 20240513
  Receipt Date: 20240513
  Transmission Date: 20240715
  Serious: Yes (Hospitalization)
  Sender: FDA-Public Use
  Company Number: JP-DSJP-DSJ-2024-120019

PATIENT
  Age: 7 Decade
  Sex: Male

DRUGS (10)
  1. EDOXABAN TOSYLATE [Suspect]
     Active Substance: EDOXABAN TOSYLATE
     Indication: Atrial fibrillation
     Dosage: 30MG/DAY
     Route: 048
  2. DULOXETINE HYDROCHLORIDE [Suspect]
     Active Substance: DULOXETINE HYDROCHLORIDE
     Indication: Back pain
     Dosage: 20MG/DAY
     Route: 048
  3. BISOPROLOL FUMARATE [Concomitant]
     Active Substance: BISOPROLOL FUMARATE
     Dosage: 5MG/DAY
     Route: 048
  4. SPIRONOLACTONE [Concomitant]
     Active Substance: SPIRONOLACTONE
     Dosage: 25MG/DAY
     Route: 048
  5. AMIODARONE HYDROCHLORIDE [Concomitant]
     Active Substance: AMIODARONE HYDROCHLORIDE
     Dosage: 200MG/DAY
     Route: 048
  6. SUVOREXANT [Concomitant]
     Active Substance: SUVOREXANT
     Dosage: 15MG/DAY
     Route: 048
  7. ESZOPICLONE [Concomitant]
     Active Substance: ESZOPICLONE
     Dosage: 1MG/DAY
     Route: 048
  8. TAMSULOSIN HYDROCHLORIDE [Concomitant]
     Active Substance: TAMSULOSIN HYDROCHLORIDE
     Dosage: 0.2MG/DAY
     Route: 048
  9. TRAMADOL HYDROCHLORIDE [Concomitant]
     Active Substance: TRAMADOL HYDROCHLORIDE
     Indication: Back pain
     Dosage: 50MG/DAY
     Route: 048
  10. ACETAMINOPHEN [Concomitant]
     Active Substance: ACETAMINOPHEN
     Indication: Back pain
     Dosage: 3000MG/DAY
     Route: 048

REACTIONS (1)
  - Inappropriate antidiuretic hormone secretion [Recovering/Resolving]
